FAERS Safety Report 18290904 (Version 2)
Quarter: 2020Q3

REPORT INFORMATION
  Report Type: Spontaneous
  Country: FR (occurrence: FR)
  Receive Date: 20200921
  Receipt Date: 20200929
  Transmission Date: 20201103
  Serious: Yes (Death)
  Sender: FDA-Public Use
  Company Number: FR-PFIZER INC-2020360290

PATIENT
  Age: 21 Year
  Sex: Male

DRUGS (3)
  1. VENLAFAXINE HCL [Suspect]
     Active Substance: VENLAFAXINE HYDROCHLORIDE
     Dosage: UNK
  2. TRAMADOL HYDROCHLORIDE. [Suspect]
     Active Substance: TRAMADOL HYDROCHLORIDE
     Dosage: UNK
  3. SKENAN [Suspect]
     Active Substance: MORPHINE SULFATE
     Dosage: UNK

REACTIONS (6)
  - Cardio-respiratory arrest [Fatal]
  - Hypoxic-ischaemic encephalopathy [Fatal]
  - Suspected suicide [Fatal]
  - Respiratory depression [Fatal]
  - Coma [Fatal]
  - Toxicity to various agents [Fatal]

NARRATIVE: CASE EVENT DATE: 202007
